FAERS Safety Report 12715151 (Version 1)
Quarter: 2016Q3

REPORT INFORMATION
  Report Type: Spontaneous
  Country: US (occurrence: US)
  Receive Date: 20160905
  Receipt Date: 20160905
  Transmission Date: 20161109
  Serious: No
  Sender: FDA-Public Use
  Company Number: US-ASTRAZENECA-2016SE84313

PATIENT
  Sex: Female
  Weight: 81.6 kg

DRUGS (1)
  1. SYMBICORT [Suspect]
     Active Substance: BUDESONIDE\FORMOTEROL FUMARATE DIHYDRATE
     Indication: ASTHMA
     Dosage: 160/4.5 MCG
     Route: 055

REACTIONS (5)
  - Dehydration [Recovered/Resolved]
  - Device malfunction [Unknown]
  - Intentional product misuse [Unknown]
  - Hypobarism [Unknown]
  - Dyspnoea exertional [Recovered/Resolved]
